FAERS Safety Report 6247243-2 (Version None)
Quarter: 2009Q2

REPORT INFORMATION
  Report Type: 
  Country: None (occurrence: None)
  Receive Date: 20090626
  Receipt Date: 20090615
  Transmission Date: 20091009
  Serious: Yes (Other)
  Sender: FDA-Public Use
  Company Number: B0578267A

PATIENT
  Age: 25 Year
  Sex: Female
  Weight: 57 kg

DRUGS (4)
  1. ALLI [Suspect]
     Indication: ILL-DEFINED DISORDER
     Dosage: 60MG TWICE PER DAY
     Route: 065
     Dates: start: 20090518, end: 20090604
  2. YASMIN [Concomitant]
     Indication: CONTRACEPTION
     Route: 048
  3. BIOTIN [Concomitant]
     Route: 065
  4. EUCERIN 10% UREA CREAM [Concomitant]

REACTIONS (4)
  - DRUG ABUSE [None]
  - OFF LABEL USE [None]
  - PRURITUS [None]
  - RASH [None]
